FAERS Safety Report 7021301-7 (Version None)
Quarter: 2010Q3

REPORT INFORMATION
  Report Type: 
  Country: None (occurrence: None)
  Receive Date: 20100929
  Receipt Date: 20100922
  Transmission Date: 20110219
  Serious: Yes (Other)
  Sender: FDA-Public Use
  Company Number: US-PFIZER INC-2010121167

PATIENT
  Sex: Male
  Weight: 61.224 kg

DRUGS (6)
  1. SUTENT [Suspect]
     Indication: GASTROINTESTINAL STROMAL TUMOUR
     Dosage: 50 MG, 1X/DAY
     Route: 048
     Dates: start: 20100901
  2. NEURONTIN [Suspect]
     Indication: ARTHRALGIA
     Dosage: 100 MG, 1X/DAY
     Route: 048
     Dates: start: 20100919, end: 20100921
  3. NEURONTIN [Suspect]
     Indication: MYALGIA
  4. METOPROLOL [Concomitant]
     Dosage: 50 MG, UNK
  5. PERCOCET [Concomitant]
     Dosage: UNK
  6. GLYBURIDE [Concomitant]
     Dosage: UNK

REACTIONS (3)
  - ARTHRALGIA [None]
  - MYALGIA [None]
  - URTICARIA [None]
